FAERS Safety Report 25527075 (Version 1)
Quarter: 2025Q3

REPORT INFORMATION
  Report Type: Report from Study
  Country: US (occurrence: US)
  Receive Date: 20250708
  Receipt Date: 20250708
  Transmission Date: 20251021
  Serious: Yes (Other)
  Sender: ABBVIE
  Company Number: US-ABBVIE-6320283

PATIENT
  Age: 27 Year
  Sex: Female

DRUGS (2)
  1. RINVOQ [Suspect]
     Active Substance: UPADACITINIB
     Indication: Psoriatic arthropathy
     Route: 048
     Dates: start: 20240410, end: 20250620
  2. COSENTYX UNOREADY [Concomitant]
     Indication: Product used for unknown indication

REACTIONS (8)
  - Cholecystectomy [Unknown]
  - Gait inability [Unknown]
  - Therapeutic product effect incomplete [Unknown]
  - Dactylitis [Unknown]
  - Nail psoriasis [Unknown]
  - Psoriasis [Unknown]
  - Arthralgia [Not Recovered/Not Resolved]
  - Psoriatic arthropathy [Unknown]

NARRATIVE: CASE EVENT DATE: 20250101
